FAERS Safety Report 9671701 (Version 1)
Quarter: 2013Q4

REPORT INFORMATION
  Report Type: Spontaneous
  Country: IN (occurrence: None)
  Receive Date: 20131104
  Receipt Date: 20131104
  Transmission Date: 20140711
  Serious: Yes (Life-Threatening)
  Sender: FDA-Public Use
  Company Number: CIP-2013-00196

PATIENT
  Age: 70 Year
  Sex: Female
  Weight: 36 kg

DRUGS (2)
  1. CARBOPLATIN [Suspect]
     Indication: OVARIAN CANCER
     Dosage: 140 MG, 100 ML NORMAL SALINE OVER ONE HOUR, INTRAVENOUS (NOT OTHERWISE SPECIFIED)
  2. PACLITAXEL (PACLITAXEL) [Concomitant]

REACTIONS (4)
  - Dyspnoea [None]
  - Anxiety [None]
  - Chills [None]
  - Pruritus [None]
